FAERS Safety Report 15301957 (Version 2)
Quarter: 2018Q4

REPORT INFORMATION
  Report Type: Spontaneous
  Country: US (occurrence: US)
  Receive Date: 20180821
  Receipt Date: 20180823
  Transmission Date: 20190204
  Serious: No
  Sender: FDA-Public Use
  Company Number: US-SA-2018SA227475

PATIENT
  Sex: Female

DRUGS (1)
  1. ASPERCREME PAIN RELIEVING [Suspect]
     Active Substance: TROLAMINE SALICYLATE
     Dosage: UNK
     Dates: start: 20180804

REACTIONS (2)
  - Pain [Unknown]
  - Burning sensation [Unknown]

NARRATIVE: CASE EVENT DATE: 20180804
